FAERS Safety Report 9733125 (Version 1)
Quarter: 2013Q4

REPORT INFORMATION
  Report Type: Spontaneous
  Country: US (occurrence: US)
  Receive Date: 20131205
  Receipt Date: 20131205
  Transmission Date: 20140711
  Serious: Yes (Death)
  Sender: FDA-Public Use
  Company Number: CHPA2013US017846

PATIENT
  Age: 86 Year
  Sex: Female

DRUGS (1)
  1. GAS-X EXTRA STRENGTH SOFTGELS [Suspect]
     Dosage: UNK, UNK
     Route: 048

REACTIONS (1)
  - Death [Fatal]
